FAERS Safety Report 15029128 (Version 1)
Quarter: 2018Q2

REPORT INFORMATION
  Report Type: Spontaneous
  Country: FR (occurrence: FR)
  Receive Date: 20180619
  Receipt Date: 20180619
  Transmission Date: 20180711
  Serious: Yes (Other)
  Sender: FDA-Public Use
  Company Number: FR-PFIZER INC-2018240508

PATIENT
  Age: 73 Year
  Sex: Female

DRUGS (4)
  1. ENDOXAN /00021102/ [Suspect]
     Active Substance: CYCLOPHOSPHAMIDE
     Indication: BREAST CANCER
     Dosage: UNSPECIFIED
     Route: 042
     Dates: end: 20180305
  2. FLUOROURACIL. [Suspect]
     Active Substance: FLUOROURACIL
     Indication: BREAST CANCER
     Dosage: UNSPECIFIED
     Route: 042
     Dates: end: 20180305
  3. EPIRUBICIN HCL [Suspect]
     Active Substance: EPIRUBICIN HYDROCHLORIDE
     Indication: BREAST CANCER
     Dosage: UNSPECIFIED
     Route: 042
     Dates: end: 20180305
  4. PACLITAXEL. [Suspect]
     Active Substance: PACLITAXEL
     Indication: BREAST CANCER
     Dosage: UNSPECIFIED
     Route: 042
     Dates: start: 20180326, end: 20180413

REACTIONS (2)
  - Lichenoid keratosis [Recovering/Resolving]
  - Toxic skin eruption [Recovering/Resolving]

NARRATIVE: CASE EVENT DATE: 20180405
